FAERS Safety Report 6278986-2 (Version None)
Quarter: 2009Q3

REPORT INFORMATION
  Report Type: 
  Country: None (occurrence: None)
  Receive Date: 20090723
  Receipt Date: 20080404
  Transmission Date: 20100115
  Serious: Yes (Death)
  Sender: FDA-Public Use
  Company Number: PHEH2008US11573

PATIENT
  Sex: Female
  Weight: 112.93 kg

DRUGS (1)
  1. GLEEVEC [Suspect]
     Indication: ACUTE LEUKAEMIA
     Dosage: 400 MG, QD
     Route: 048
     Dates: start: 20080101

REACTIONS (1)
  - DEATH [None]
